FAERS Safety Report 5694366-2 (Version None)
Quarter: 2008Q2

REPORT INFORMATION
  Report Type: 
  Country: None (occurrence: None)
  Receive Date: 20080402
  Receipt Date: 20080319
  Transmission Date: 20081010
  Serious: Yes (Hospitalization)
  Sender: FDA-Public Use
  Company Number: GXKR2008NL02934

PATIENT
  Age: 8 Year
  Sex: Male

DRUGS (1)
  1. FUROSEMIDE [Suspect]

REACTIONS (4)
  - ABDOMINAL PAIN UPPER [None]
  - BACK PAIN [None]
  - PYELOCALIECTASIS [None]
  - VOMITING [None]
